FAERS Safety Report 19566820 (Version 1)
Quarter: 2021Q3

REPORT INFORMATION
  Report Type: Spontaneous
  Country: US (occurrence: US)
  Receive Date: 20210716
  Receipt Date: 20210716
  Transmission Date: 20211014
  Serious: Yes (Hospitalization)
  Sender: FDA-Public Use
  Company Number: US-ROCHE-2871542

PATIENT
  Sex: Female

DRUGS (10)
  1. ADVAIR HFA [Concomitant]
     Active Substance: FLUTICASONE PROPIONATE\SALMETEROL XINAFOATE
  2. XARELTO [Concomitant]
     Active Substance: RIVAROXABAN
  3. PREDNISONE. [Concomitant]
     Active Substance: PREDNISONE
  4. FUROSEMIDE. [Concomitant]
     Active Substance: FUROSEMIDE
  5. ESBRIET [Suspect]
     Active Substance: PIRFENIDONE
     Indication: IDIOPATHIC PULMONARY FIBROSIS
     Route: 048
     Dates: start: 201901
  6. TRAZODONE [Concomitant]
     Active Substance: TRAZODONE HYDROCHLORIDE
  7. ADEMPAS [Concomitant]
     Active Substance: RIOCIGUAT
  8. ALBUTEROL. [Concomitant]
     Active Substance: ALBUTEROL
  9. GABAPENTIN. [Concomitant]
     Active Substance: GABAPENTIN
  10. FLECAINIDE [Concomitant]
     Active Substance: FLECAINIDE

REACTIONS (1)
  - Pneumonia [Unknown]

NARRATIVE: CASE EVENT DATE: 2021
